FAERS Safety Report 4993449-X (Version None)
Quarter: 2006Q2

REPORT INFORMATION
  Report Type: 
  Country: None (occurrence: None)
  Receive Date: 20060504
  Receipt Date: 20060504
  Transmission Date: 20061013
  Serious: No
  Sender: FDA-Public Use
  Company Number: None

PATIENT
  Age: 61 Year
  Sex: Male

DRUGS (20)
  1. FUROSEMIDE [Suspect]
     Dosage: 80 MG PO DAILY
     Route: 048
     Dates: start: 20050928, end: 20060206
  2. LISINOPRIL [Suspect]
     Dosage: 40 PO BID
     Route: 048
     Dates: start: 20050903, end: 20060206
  3. ASPIRIN [Concomitant]
  4. LIPITOR [Concomitant]
  5. CELEXA [Concomitant]
  6. ZETIA [Concomitant]
  7. PLENDIL [Concomitant]
  8. LASIX [Concomitant]
  9. NEURONTIN [Concomitant]
  10. LORTAB [Concomitant]
  11. NPH INSULIN [Concomitant]
  12. ISDN [Concomitant]
  13. ATIVAN [Concomitant]
  14. METFORMIN [Concomitant]
  15. ROBAXIN [Concomitant]
  16. METOPROLOL [Concomitant]
  17. NTG SL [Concomitant]
  18. OMEPRAZOLE [Concomitant]
  19. FELDENE [Concomitant]
  20. TERAZOSIN HCL [Concomitant]

REACTIONS (6)
  - DIARRHOEA [None]
  - DIZZINESS [None]
  - HYPOVOLAEMIA [None]
  - LOSS OF CONSCIOUSNESS [None]
  - RENAL FAILURE ACUTE [None]
  - SYNCOPE [None]
